FAERS Safety Report 11825305 (Version 1)
Quarter: 2015Q4

REPORT INFORMATION
  Report Type: Spontaneous
  Country: US (occurrence: US)
  Receive Date: 20151211
  Receipt Date: 20151211
  Transmission Date: 20160305
  Serious: Yes (Hospitalization, Disabling, Other)
  Sender: FDA-Public Use
  Company Number: US-BEH-2015055588

PATIENT
  Age: 30 Year
  Sex: Female

DRUGS (2)
  1. DESMOPRESSIN [Suspect]
     Active Substance: DESMOPRESSIN
     Indication: VON WILLEBRAND^S DISEASE
  2. DESMOPRESSIN [Suspect]
     Active Substance: DESMOPRESSIN
     Indication: PROPHYLAXIS

REACTIONS (6)
  - Unresponsive to stimuli [Unknown]
  - Hyponatraemia [Unknown]
  - Osmotic demyelination syndrome [Not Recovered/Not Resolved]
  - Quadriparesis [Unknown]
  - Generalised tonic-clonic seizure [Recovered/Resolved]
  - Pseudobulbar palsy [Unknown]
